FAERS Safety Report 5839481-5 (Version None)
Quarter: 2008Q3

REPORT INFORMATION
  Report Type: 
  Country: None (occurrence: None)
  Receive Date: 20080807
  Receipt Date: 20080730
  Transmission Date: 20090109
  Serious: Yes (Other)
  Sender: FDA-Public Use
  Company Number: GXKR2008GB07136

PATIENT
  Age: 80 Year
  Sex: Female

DRUGS (17)
  1. CEFUROXIME                       (CEFUROXIME) SUSPENSION [Suspect]
     Indication: CATARACT OPERATION
     Dosage: 125 MG,
     Dates: start: 20080429, end: 20080429
  2. ADRENALINE          (EPINEPHRINE) SOLUTION IN VIAL [Suspect]
     Indication: CATARACT OPERATION
     Dosage: 125 MG
     Dates: start: 20080429, end: 20080429
  3. HEALON      (HYALURONATE SODIUM) [Suspect]
     Indication: CATARACT OPERATION
     Dates: start: 20080429, end: 20080429
  4. BALANCED SALT SOLUTION [Suspect]
  5. ACETYLSALICYLIC ACID SRT [Concomitant]
  6. CANDESARTAN CILEXETIL [Concomitant]
  7. CITALOPRAM HYDROBROMIDE [Concomitant]
  8. CYCLOPENTOLATE 9CYCLOPENTOLATE), 1% [Concomitant]
  9. FEXOFENADINE HCL [Concomitant]
  10. FUROSEMIDE (FUROSEMIDE) [Concomitant]
  11. HYDROXYZINE [Concomitant]
  12. ISOSORBIDE MONONITRATE [Concomitant]
  13. LEVOTHYROXINE SODIUM [Concomitant]
  14. MAXITROL (DEXAMETHASONE, NEOMYCIN SULFATE, POLYMYXIN B SULFATE) [Concomitant]
  15. PHENYLEPHRINE (PHENYLEPHRINE), 10% [Concomitant]
  16. POVIDONE (POLYVIDONE) [Concomitant]
  17. DICLOFENAC SODIUM [Concomitant]

REACTIONS (1)
  - RETINAL INJURY [None]
